FAERS Safety Report 9198526 (Version 1)
Quarter: 2013Q1

REPORT INFORMATION
  Report Type: Spontaneous
  Country: US (occurrence: US)
  Receive Date: 20130329
  Receipt Date: 20130329
  Transmission Date: 20140127
  Serious: Yes (Death)
  Sender: FDA-Public Use
  Company Number: PHEH2013US007072

PATIENT
  Age: 92 Year
  Sex: Female

DRUGS (16)
  1. RECLAST [Suspect]
     Indication: SENILE OSTEOPOROSIS
     Dosage: 5 MG, YEARLY
     Route: 042
     Dates: start: 20100504
  2. RECLAST [Suspect]
     Dosage: 5 MG, YEARLY
     Route: 042
     Dates: start: 20110926
  3. OMEPRAZOLE [Concomitant]
     Dosage: 1 DF (20MG), UNK
     Route: 048
     Dates: start: 20120119
  4. ALBUTEROL [Concomitant]
     Dosage: 2 PUFFS EVERY 4-6 HOURS AS NEEDED
     Dates: start: 20110622
  5. ASPIRIN [Concomitant]
     Dosage: 325 MG, QD
     Route: 048
  6. ASPIRIN [Concomitant]
     Dosage: 81 MG, UNK
     Route: 048
     Dates: start: 20110405
  7. COMBIGAN [Concomitant]
     Dosage: 1 DRP, BID
     Route: 047
     Dates: start: 20100408
  8. CARDIZEM [Concomitant]
     Dosage: 300 MG, QD
     Route: 048
     Dates: start: 20110627
  9. FLONASE [Concomitant]
     Dosage: 1 SPRAY, BID
     Route: 045
     Dates: start: 20110629
  10. LASIX [Concomitant]
     Dosage: 1 DF (20 MG), UNK
     Route: 048
     Dates: start: 20111208
  11. SYNTHROID [Concomitant]
     Dosage: 125 UG, QD
     Route: 048
     Dates: start: 20111003
  12. LISINOPRIL [Concomitant]
     Dosage: 20 MG, QD
     Route: 048
     Dates: start: 20111214
  13. MYCOSTATIN [Concomitant]
     Dosage: UNK UKN, BID
     Route: 061
     Dates: start: 20110715
  14. PRILOSEC [Concomitant]
     Dosage: 20 MG, QD
     Route: 048
     Dates: start: 20120119
  15. POTASSIUM [Concomitant]
     Dosage: 75 MG, UNK
     Route: 048
  16. ULTRAM [Concomitant]
     Dosage: 50 MG, PRN
     Route: 048
     Dates: start: 20100927

REACTIONS (7)
  - Encephalopathy [Fatal]
  - Fall [Fatal]
  - Respiratory failure [Fatal]
  - Brain injury [Fatal]
  - Cardiovascular disorder [Fatal]
  - Bradycardia [Fatal]
  - Atrial fibrillation [Fatal]
